FAERS Safety Report 19207295 (Version 2)
Quarter: 2021Q4

REPORT INFORMATION
  Report Type: Spontaneous
  Country: US (occurrence: US)
  Receive Date: 20210503
  Receipt Date: 20211018
  Transmission Date: 20220303
  Serious: No
  Sender: FDA-Public Use
  Company Number: US-PFIZER INC-2021191845

PATIENT
  Age: 83 Year
  Sex: Female

DRUGS (1)
  1. IBRANCE [Suspect]
     Active Substance: PALBOCICLIB
     Indication: Breast cancer female
     Dosage: 75 MG
     Dates: end: 20210315

REACTIONS (7)
  - Blood test abnormal [Not Recovered/Not Resolved]
  - Contusion [Unknown]
  - Dizziness [Unknown]
  - Fatigue [Recovering/Resolving]
  - Gait disturbance [Unknown]
  - Vertigo [Unknown]
  - Vitamin B12 decreased [Unknown]

NARRATIVE: CASE EVENT DATE: 20210311
